FAERS Safety Report 15230988 (Version 1)
Quarter: 2018Q3

REPORT INFORMATION
  Report Type: Spontaneous
  Country: US (occurrence: US)
  Receive Date: 20180802
  Receipt Date: 20180802
  Transmission Date: 20181010
  Serious: Yes (Other)
  Sender: FDA-Public Use
  Company Number: US-ACCORD-063818

PATIENT
  Age: 61 Year
  Sex: Female

DRUGS (8)
  1. HERCEPTIN [Concomitant]
     Active Substance: TRASTUZUMAB
     Route: 042
  2. COREG [Concomitant]
     Active Substance: CARVEDILOL
     Dates: start: 2002
  3. DOCETAXEL ACCORD [Suspect]
     Active Substance: DOCETAXEL
     Indication: BREAST CANCER STAGE II
     Route: 042
     Dates: start: 20160215, end: 20160407
  4. PERJETA [Concomitant]
     Active Substance: PERTUZUMAB
     Route: 042
  5. LYRICA [Concomitant]
     Active Substance: PREGABALIN
     Dosage: STRENGTH: 150 MG
     Dates: start: 2007
  6. ZOFRAN [Concomitant]
     Active Substance: ONDANSETRON HYDROCHLORIDE
     Dosage: STRENGTH: 16 MG
     Route: 042
  7. NORCO [Concomitant]
     Active Substance: ACETAMINOPHEN\HYDROCODONE BITARTRATE
     Dates: start: 2015
  8. DECADRON [Concomitant]
     Active Substance: DEXAMETHASONE
     Dosage: STRENGTH: 20 MG
     Route: 042

REACTIONS (1)
  - Alopecia [Not Recovered/Not Resolved]

NARRATIVE: CASE EVENT DATE: 20161007
